FAERS Safety Report 25445566 (Version 1)
Quarter: 2025Q2

REPORT INFORMATION
  Report Type: Spontaneous
  Country: US (occurrence: US)
  Receive Date: 20250617
  Receipt Date: 20250617
  Transmission Date: 20250717
  Serious: Yes (Other)
  Sender: PFIZER
  Company Number: US-PFIZER INC-202500120972

PATIENT
  Age: 68 Year
  Sex: Female
  Weight: 83.91 kg

DRUGS (3)
  1. ZITHROMAX [Suspect]
     Active Substance: AZITHROMYCIN DIHYDRATE
     Dosage: TWO TABLETS BY MOUTH ON DAY ONE
     Route: 048
     Dates: start: 20250609, end: 20250609
  2. ZITHROMAX [Suspect]
     Active Substance: AZITHROMYCIN DIHYDRATE
     Dosage: THEN TAKE ONE TABLET BY MOUTH DAILY FOR FOUR DAYS WITH FOOD
     Route: 048
     Dates: start: 20250610, end: 20250610
  3. XARELTO [Concomitant]
     Active Substance: RIVAROXABAN
     Indication: Thrombosis

REACTIONS (7)
  - Exophthalmos [Not Recovered/Not Resolved]
  - Conjunctivitis [Not Recovered/Not Resolved]
  - Ocular hyperaemia [Not Recovered/Not Resolved]
  - Dysphonia [Recovering/Resolving]
  - Rash [Not Recovered/Not Resolved]
  - COVID-19 [Not Recovered/Not Resolved]
  - Vibration syndrome [Not Recovered/Not Resolved]

NARRATIVE: CASE EVENT DATE: 20250609
